FAERS Safety Report 9867857 (Version 2)
Quarter: 2014Q1

REPORT INFORMATION
  Report Type: Report from Study
  Country: EE (occurrence: EE)
  Receive Date: 20140204
  Receipt Date: 20140204
  Transmission Date: 20141002
  Serious: Yes (Hospitalization, Other)
  Sender: FDA-Public Use
  Company Number: EE-SANOFI-AVENTIS-2012SA002518

PATIENT
  Age: 27 Year
  Sex: Female
  Weight: 65 kg

DRUGS (1)
  1. TERIFLUNOMIDE [Suspect]
     Indication: MULTIPLE SCLEROSIS
     Route: 048
     Dates: start: 20101006, end: 20120115

REACTIONS (6)
  - Infectious mononucleosis [Recovered/Resolved]
  - Clostridium difficile colitis [Recovered/Resolved]
  - Alanine aminotransferase increased [Recovered/Resolved]
  - Aspartate aminotransferase increased [Recovered/Resolved]
  - Cough [Recovered/Resolved]
  - Dyspnoea [Recovered/Resolved]
